FAERS Safety Report 8121652-9 (Version None)
Quarter: 2012Q1

REPORT INFORMATION
  Report Type: 
  Country: None (occurrence: None)
  Receive Date: 20120208
  Receipt Date: 20120208
  Transmission Date: 20120608
  Serious: Yes (Other)
  Sender: FDA-Public Use
  Company Number: None

PATIENT
  Age: 45 Year
  Sex: Female
  Weight: 63.502 kg

DRUGS (1)
  1. SCOPOLAMINE [Suspect]
     Indication: PROCEDURAL NAUSEA
     Route: 065
     Dates: start: 20110125, end: 20110125

REACTIONS (6)
  - BLINDNESS [None]
  - VITREOUS FLOATERS [None]
  - AURICULAR SWELLING [None]
  - DISTURBANCE IN ATTENTION [None]
  - SWELLING FACE [None]
  - EAR DISORDER [None]
